FAERS Safety Report 13941588 (Version 1)
Quarter: 2017Q3

REPORT INFORMATION
  Report Type: Spontaneous
  Country: US (occurrence: None)
  Receive Date: 20170906
  Receipt Date: 20170906
  Transmission Date: 20171127
  Serious: Yes (Death)
  Sender: FDA-Public Use
  Company Number: None

PATIENT
  Age: 80 Year
  Sex: Male

DRUGS (1)
  1. PROLIA [Suspect]
     Active Substance: DENOSUMAB
     Indication: OSTEOPOROSIS
     Dosage: 03/13/17 - ONLY DOSE?Q6MOS
     Route: 058
     Dates: start: 20170313

REACTIONS (2)
  - Cardiomyopathy [None]
  - Myocardial infarction [None]

NARRATIVE: CASE EVENT DATE: 201704
